FAERS Safety Report 9239937 (Version 1)
Quarter: 2013Q2

REPORT INFORMATION
  Report Type: Spontaneous
  Country: US (occurrence: US)
  Receive Date: 20130418
  Receipt Date: 20130418
  Transmission Date: 20140414
  Serious: Yes (Other)
  Sender: FDA-Public Use
  Company Number: US-ROXANE LABORATORIES, INC.-2013-RO-00510RO

PATIENT
  Sex: 0

DRUGS (1)
  1. LITHIUM CARBONATE [Suspect]
     Dates: start: 1983

REACTIONS (1)
  - Renal failure [Unknown]
